FAERS Safety Report 7550260-3 (Version None)
Quarter: 2011Q2

REPORT INFORMATION
  Report Type: 
  Country: None (occurrence: None)
  Receive Date: 20110615
  Receipt Date: 20110131
  Transmission Date: 20111010
  Serious: Yes (Hospitalization, Other)
  Sender: FDA-Public Use
  Company Number: US-BAYER-US-2007-007271

PATIENT
  Age: 61 Year
  Sex: Male

DRUGS (14)
  1. MITOXANTRONE HYDROCHLORIDE [Concomitant]
  2. RITUXIMAB [Concomitant]
  3. BETASERON [Suspect]
     Dosage: 8 MIU, QOD
     Route: 058
     Dates: end: 20090801
  4. FLOMAX [Concomitant]
  5. STOMACH PILLS +#8211; UNSURE OF THE NAME [Concomitant]
  6. NORCO [Concomitant]
  7. DOXORUBICIN HCL [Concomitant]
  8. CYCLOPHOSPHAMIDE [Concomitant]
  9. BETASERON [Suspect]
     Indication: RELAPSING-REMITTING MULTIPLE SCLEROSIS
     Dosage: 8 MIU, TIW
     Route: 058
     Dates: start: 19990514
  10. BETASERON [Suspect]
     Dosage: 8 MIU, QOD
     Route: 058
     Dates: start: 20100526
  11. ALLOPURINOL [Concomitant]
  12. BETASERON [Suspect]
     Dosage: 8 MIU, QOD
     Route: 058
     Dates: end: 20110119
  13. VINCRISTINE [Concomitant]
  14. PREDNISONE [Concomitant]

REACTIONS (30)
  - STRESS [None]
  - LYMPHOMA [None]
  - ALOPECIA [None]
  - THROMBOSIS [None]
  - DIPLOPIA [None]
  - FATIGUE [None]
  - HYPERSOMNIA [None]
  - ABASIA [None]
  - WHITE BLOOD CELL COUNT ABNORMAL [None]
  - MUSCULOSKELETAL CHEST PAIN [None]
  - PROCEDURAL PAIN [None]
  - INTESTINAL HAEMORRHAGE [None]
  - HYPOAESTHESIA [None]
  - EYE INJURY [None]
  - MEMORY IMPAIRMENT [None]
  - GAIT DISTURBANCE [None]
  - PAIN IN EXTREMITY [None]
  - MULTIPLE SCLEROSIS [None]
  - MUSCULAR WEAKNESS [None]
  - ABDOMINAL PAIN UPPER [None]
  - URINARY INCONTINENCE [None]
  - INGUINAL MASS [None]
  - GANGRENE [None]
  - OEDEMA PERIPHERAL [None]
  - HEART RATE INCREASED [None]
  - VISUAL IMPAIRMENT [None]
  - FROSTBITE [None]
  - ASTHENIA [None]
  - FALL [None]
  - DERMAL CYST [None]
